FAERS Safety Report 6149302-1 (Version None)
Quarter: 2009Q2

REPORT INFORMATION
  Report Type: 
  Country: None (occurrence: None)
  Receive Date: 20090409
  Receipt Date: 20090401
  Transmission Date: 20091009
  Serious: Yes (Disabling)
  Sender: FDA-Public Use
  Company Number: JP-BAYER-200911009BYL

PATIENT
  Age: 62 Year
  Sex: Female

DRUGS (2)
  1. FLUDARA [Suspect]
     Indication: FOLLICLE CENTRE LYMPHOMA, FOLLICULAR GRADE I, II, III
     Route: 048
     Dates: start: 20060920, end: 20070317
  2. RITUXIMAB [Concomitant]
     Indication: FOLLICLE CENTRE LYMPHOMA, FOLLICULAR GRADE I, II, III
     Dosage: AS USED: 375 MG/M2
     Route: 041
     Dates: start: 20060920

REACTIONS (1)
  - BONE NEOPLASM [None]
